FAERS Safety Report 14797633 (Version 1)
Quarter: 2018Q2

REPORT INFORMATION
  Report Type: Spontaneous
  Country: FR (occurrence: FR)
  Receive Date: 20180424
  Receipt Date: 20180424
  Transmission Date: 20180711
  Serious: Yes (Other)
  Sender: FDA-Public Use
  Company Number: FR-MERCK KGAA-2046343

PATIENT
  Age: 87 Year
  Sex: Female

DRUGS (1)
  1. NOVOTHYROX [Suspect]
     Active Substance: LEVOTHYROXINE SODIUM
     Indication: PRODUCT USED FOR UNKNOWN INDICATION

REACTIONS (20)
  - Hyperchlorhydria [None]
  - Fall [None]
  - Paraesthesia [Recovered/Resolved]
  - Blood chloride decreased [None]
  - Gait disturbance [None]
  - Anxiety [None]
  - General physical health deterioration [Recovered/Resolved]
  - Blood thyroid stimulating hormone increased [None]
  - Loss of personal independence in daily activities [Recovered/Resolved]
  - Dyspepsia [Recovered/Resolved]
  - Decreased appetite [Recovered/Resolved]
  - Balance disorder [None]
  - Hypertensive emergency [Recovered/Resolved]
  - Hypertension [Recovered/Resolved]
  - Fatigue [None]
  - Fear of falling [None]
  - Gait inability [None]
  - Asthenia [Recovered/Resolved]
  - Muscular weakness [None]
  - Social avoidant behaviour [None]

NARRATIVE: CASE EVENT DATE: 20170627
